FAERS Safety Report 10661514 (Version 3)
Quarter: 2015Q1

REPORT INFORMATION
  Report Type: Spontaneous
  Country: US (occurrence: None)
  Receive Date: 20141216
  Receipt Date: 20150120
  Transmission Date: 20150720
  Serious: Yes (Death, Hospitalization)
  Sender: FDA-Public Use
  Company Number: US-20140025

PATIENT
  Age: 69 Year
  Sex: Female
  Weight: 145 kg

DRUGS (2)
  1. DOTAREM [Suspect]
     Active Substance: GADOTERATE MEGLUMINE
     Indication: NUCLEAR MAGNETIC RESONANCE IMAGING BRAIN
     Route: 042
     Dates: start: 20141126, end: 20141126
  2. SALINE (SODIUM CHLORIDE) (SODIUM CHLORIDE) [Concomitant]

REACTIONS (5)
  - Unresponsive to stimuli [None]
  - Dysphagia [None]
  - Cough [None]
  - Depressed level of consciousness [None]
  - Speech disorder [None]

NARRATIVE: CASE EVENT DATE: 20141126
